FAERS Safety Report 20640811 (Version 1)
Quarter: 2022Q1

REPORT INFORMATION
  Report Type: Spontaneous
  Country: US (occurrence: US)
  Receive Date: 20220327
  Receipt Date: 20220327
  Transmission Date: 20220423
  Serious: No
  Sender: FDA-Public Use
  Company Number: US-SA-SAC20220321000531

PATIENT
  Sex: Female

DRUGS (7)
  1. DUPIXENT [Suspect]
     Active Substance: DUPILUMAB
     Indication: Dermatitis atopic
     Dosage: 300 MG, QOW
     Route: 058
     Dates: start: 20220223
  2. CELECOXIB [Concomitant]
     Active Substance: CELECOXIB
  3. CLOBETASOL [Concomitant]
     Active Substance: CLOBETASOL
  4. ESTRADIOL [Concomitant]
     Active Substance: ESTRADIOL
  5. TYLENOL [Concomitant]
     Active Substance: ACETAMINOPHEN
  6. CYCLOBENZAPRINE [Concomitant]
     Active Substance: CYCLOBENZAPRINE
  7. LEVOTHYROXINE [Concomitant]
     Active Substance: LEVOTHYROXINE

REACTIONS (1)
  - Dermatitis atopic [Recovering/Resolving]
